FAERS Safety Report 7827632-2 (Version None)
Quarter: 2011Q4

REPORT INFORMATION
  Report Type: 
  Country: None (occurrence: None)
  Receive Date: 20111019
  Receipt Date: 20111019
  Transmission Date: 20120403
  Serious: Yes (Life-Threatening, Hospitalization)
  Sender: FDA-Public Use
  Company Number: None

PATIENT
  Age: 78 Year
  Sex: Female
  Weight: 73.3 kg

DRUGS (1)
  1. TRANEXAMIC ACID [Suspect]
     Indication: KNEE ARTHROPLASTY
     Dosage: 1100MG ONCE IV
     Route: 042
     Dates: start: 20110929

REACTIONS (1)
  - CEREBELLAR INFARCTION [None]
